FAERS Safety Report 17185030 (Version 1)
Quarter: 2019Q4

REPORT INFORMATION
  Report Type: Spontaneous
  Country: SE (occurrence: SE)
  Receive Date: 20191220
  Receipt Date: 20191220
  Transmission Date: 20200122
  Serious: Yes (Other)
  Sender: FDA-Public Use
  Company Number: SE-BAYER-2019-226801

PATIENT
  Age: 26 Year
  Sex: Female

DRUGS (1)
  1. LEVONORGESTREL IUS [UNKNOWN] [Suspect]
     Active Substance: LEVONORGESTREL
     Indication: CONTRACEPTION
     Dosage: UNK
     Route: 015
     Dates: start: 2003, end: 2004

REACTIONS (8)
  - Amniotic cavity disorder [None]
  - Haemorrhage in pregnancy [None]
  - Pregnancy with contraceptive device [Recovered/Resolved]
  - Embedded device [None]
  - Premature labour [Recovered/Resolved]
  - Back pain [None]
  - Medical device monitoring error [None]
  - Abdominal pain [None]

NARRATIVE: CASE EVENT DATE: 2003
